FAERS Safety Report 23531552 (Version 1)
Quarter: 2024Q1

REPORT INFORMATION
  Report Type: Report from Study
  Country: US (occurrence: US)
  Receive Date: 20240216
  Receipt Date: 20240216
  Transmission Date: 20240410
  Serious: Yes (Hospitalization)
  Sender: FDA-Public Use
  Company Number: US-HORIZON THERAPEUTICS-HZN-2024-001726

PATIENT

DRUGS (1)
  1. UPLIZNA [Suspect]
     Active Substance: INEBILIZUMAB-CDON
     Indication: Product used for unknown indication
     Dosage: FIRST DOSE
     Route: 065

REACTIONS (5)
  - Musculoskeletal stiffness [Recovered/Resolved]
  - Burning sensation [Recovered/Resolved]
  - Breast pain [Not Recovered/Not Resolved]
  - Feeling abnormal [Recovered/Resolved]
  - Paraesthesia [Recovered/Resolved]
